FAERS Safety Report 13870275 (Version 1)
Quarter: 2017Q3

REPORT INFORMATION
  Report Type: Spontaneous
  Country: JP (occurrence: JP)
  Receive Date: 20170815
  Receipt Date: 20170815
  Transmission Date: 20171127
  Serious: Yes (Hospitalization)
  Sender: FDA-Public Use
  Company Number: JP-PFIZER INC-2017351008

PATIENT

DRUGS (3)
  1. CABASER [Concomitant]
     Active Substance: CABERGOLINE
     Indication: PITUITARY TUMOUR
     Dosage: 1 MG, WEEKLY
     Route: 048
  2. CORTRIL [Suspect]
     Active Substance: HYDROCORTISONE
     Indication: HORMONE THERAPY
  3. CORTRIL [Suspect]
     Active Substance: HYDROCORTISONE
     Indication: STEROID THERAPY

REACTIONS (1)
  - Bipolar disorder [Unknown]
